FAERS Safety Report 6363549-0 (Version None)
Quarter: 2009Q3

REPORT INFORMATION
  Report Type: 
  Country: None (occurrence: None)
  Receive Date: 20090919
  Receipt Date: 20090702
  Transmission Date: 20100115
  Serious: No
  Sender: FDA-Public Use
  Company Number: US-ABBOTT-09P-163-0583285-00

PATIENT
  Sex: Female
  Weight: 56.75 kg

DRUGS (3)
  1. HUMIRA [Suspect]
     Indication: CROHN'S DISEASE
     Dates: start: 20090301
  2. ASACOL [Concomitant]
     Indication: DRUG USE FOR UNKNOWN INDICATION
  3. BIRTH CONTROL PILL [Concomitant]
     Indication: DRUG USE FOR UNKNOWN INDICATION

REACTIONS (7)
  - DARK CIRCLES UNDER EYES [None]
  - DEPRESSION [None]
  - DRUG INEFFECTIVE [None]
  - FATIGUE [None]
  - INCREASED TENDENCY TO BRUISE [None]
  - INJECTION SITE PRURITUS [None]
  - WHITE BLOOD CELL COUNT DECREASED [None]
